FAERS Safety Report 6294187-6 (Version None)
Quarter: 2009Q3

REPORT INFORMATION
  Report Type: 
  Country: None (occurrence: None)
  Receive Date: 20090803
  Receipt Date: 20090209
  Transmission Date: 20100115
  Serious: No
  Sender: FDA-Public Use
  Company Number: A0767667A

PATIENT
  Age: 33 Year
  Sex: Male

DRUGS (1)
  1. NICORETTE [Suspect]
     Dates: start: 20090128, end: 20090207

REACTIONS (3)
  - GINGIVITIS [None]
  - HYPERSENSITIVITY [None]
  - SWELLING FACE [None]
